FAERS Safety Report 17381413 (Version 1)
Quarter: 2020Q1

REPORT INFORMATION
  Report Type: Spontaneous
  Country: US (occurrence: US)
  Receive Date: 20200206
  Receipt Date: 20200206
  Transmission Date: 20200409
  Serious: No
  Sender: FDA-Public Use
  Company Number: US-ABBVIE-19K-163-2789084-00

PATIENT
  Sex: Male

DRUGS (1)
  1. HUMIRA [Suspect]
     Active Substance: ADALIMUMAB
     Indication: PSORIASIS
     Route: 058
     Dates: start: 2019, end: 201905

REACTIONS (7)
  - Throat clearing [Unknown]
  - Pharyngeal swelling [Unknown]
  - Drug hypersensitivity [Not Recovered/Not Resolved]
  - Sinus disorder [Unknown]
  - Lip swelling [Not Recovered/Not Resolved]
  - Nasopharyngitis [Unknown]
  - Mouth swelling [Not Recovered/Not Resolved]

NARRATIVE: CASE EVENT DATE: 2019
